FAERS Safety Report 5590672-0 (Version None)
Quarter: 2008Q1

REPORT INFORMATION
  Report Type: 
  Country: None (occurrence: None)
  Receive Date: 20080114
  Receipt Date: 20080108
  Transmission Date: 20080703
  Serious: Yes (Hospitalization)
  Sender: FDA-Public Use
  Company Number: US-PFIZER INC-2007094419

PATIENT
  Sex: Male
  Weight: 100 kg

DRUGS (3)
  1. ZIPRASIDONE (CAPS) [Suspect]
     Indication: BIPOLAR I DISORDER
     Route: 048
     Dates: start: 20071107, end: 20071111
  2. ROZEREM [Concomitant]
     Route: 048
  3. ATIVAN [Concomitant]
     Route: 048
     Dates: start: 20070801

REACTIONS (1)
  - SUICIDAL IDEATION [None]
